FAERS Safety Report 6061347-9 (Version None)
Quarter: 2009Q1

REPORT INFORMATION
  Report Type: 
  Country: None (occurrence: None)
  Receive Date: 20090130
  Receipt Date: 20090130
  Transmission Date: 20090719
  Serious: Yes (Death)
  Sender: FDA-Public Use
  Company Number: None

PATIENT
  Age: 60 Year
  Sex: Male
  Weight: 81.6475 kg

DRUGS (1)
  1. DIGOXIN [Suspect]
     Indication: CONGESTIVE CARDIOMYOPATHY
     Dosage: 1 DAILY PO
     Route: 048
     Dates: start: 20071009, end: 20080118

REACTIONS (5)
  - CONGESTIVE CARDIOMYOPATHY [None]
  - FALL [None]
  - HEAD INJURY [None]
  - HEART RATE IRREGULAR [None]
  - SKIN LACERATION [None]
